FAERS Safety Report 9496549 (Version 3)
Quarter: 2013Q4

REPORT INFORMATION
  Report Type: Spontaneous
  Country: JP (occurrence: JP)
  Receive Date: 20130904
  Receipt Date: 20131008
  Transmission Date: 20140711
  Serious: Yes (Life-Threatening)
  Sender: FDA-Public Use
  Company Number: JP-GE HEALTHCARE MEDICAL DIAGNOSTICS-OMPQ-PR-1307S-0971

PATIENT
  Age: 38 Year
  Sex: Male

DRUGS (2)
  1. OMNIPAQUE [Suspect]
     Indication: BACK PAIN
     Route: 042
     Dates: start: 20130714, end: 20130714
  2. OMNIPAQUE [Suspect]
     Indication: DIAGNOSTIC PROCEDURE

REACTIONS (2)
  - Renal failure acute [Recovered/Resolved]
  - Pulmonary alveolar haemorrhage [Recovered/Resolved]
